FAERS Safety Report 5854223-5 (Version None)
Quarter: 2008Q3

REPORT INFORMATION
  Report Type: 
  Country: None (occurrence: None)
  Receive Date: 20080822
  Receipt Date: 20080815
  Transmission Date: 20090109
  Serious: Yes (Hospitalization)
  Sender: FDA-Public Use
  Company Number: PHHY2008GB18610

PATIENT
  Sex: Male

DRUGS (2)
  1. CLOZARIL [Suspect]
     Indication: SCHIZOPHRENIA
     Dosage: UNK
     Route: 048
     Dates: start: 20080128, end: 20080812
  2. DIAZEPAM [Concomitant]

REACTIONS (5)
  - CHOLINERGIC SYNDROME [None]
  - DIARRHOEA [None]
  - HYPERHIDROSIS [None]
  - NEUTROPENIA [None]
  - VOMITING [None]
